FAERS Safety Report 9852292 (Version 2)
Quarter: 2014Q1

REPORT INFORMATION
  Report Type: Spontaneous
  Country: US (occurrence: None)
  Receive Date: 20140127
  Receipt Date: 20140228
  Transmission Date: 20141002
  Serious: Yes (Other)
  Sender: FDA-Public Use
  Company Number: AUR-APL-2014-00467

PATIENT
  Sex: Female

DRUGS (2)
  1. ESCITALOPRAM [Suspect]
     Indication: AFFECTIVE DISORDER
     Dates: start: 201304
  2. DEPAKOTE (VALPROATE SEMISODIUM) [Concomitant]

REACTIONS (7)
  - Hallucination, visual [None]
  - Hallucination, auditory [None]
  - Muscle rigidity [None]
  - Back pain [None]
  - Grand mal convulsion [None]
  - Muscle spasms [None]
  - Dyspnoea [None]
